FAERS Safety Report 22536730 (Version 1)
Quarter: 2023Q2

REPORT INFORMATION
  Report Type: Spontaneous
  Country: FI (occurrence: FI)
  Receive Date: 20230608
  Receipt Date: 20230608
  Transmission Date: 20230721
  Serious: Yes (Other)
  Sender: FDA-Public Use
  Company Number: FI-ABBVIE-5279098

PATIENT
  Age: 62 Year
  Sex: Male

DRUGS (5)
  1. OZURDEX [Suspect]
     Active Substance: DEXAMETHASONE
     Indication: Product used for unknown indication
     Dosage: TIME INTERVAL: AS NECESSARY: ADMIN DATE DEC-2021
     Route: 031
  2. OZURDEX [Suspect]
     Active Substance: DEXAMETHASONE
     Dosage: TIME INTERVAL: AS NECESSARY: ADMIN DATE 2022
     Route: 031
  3. OZURDEX [Suspect]
     Active Substance: DEXAMETHASONE
     Dosage: TIME INTERVAL: AS NECESSARY: ADMIN DATE 2021
     Route: 031
  4. OFTAN DEXA-CHLORA [Concomitant]
     Indication: Product used for unknown indication
     Dosage: RIGHT EYE ON 2021
  5. BROMFENAC SODIUM [Concomitant]
     Active Substance: BROMFENAC SODIUM
     Indication: Product used for unknown indication
     Dosage: O.DX. RIGHT EYE ON 2021

REACTIONS (13)
  - Cataract cortical [Unknown]
  - Retinal collateral vessels [Unknown]
  - Visual acuity reduced [Unknown]
  - Posterior capsule opacification [Unknown]
  - Retinal haemorrhage [Unknown]
  - Aneurysm [Unknown]
  - Intraocular pressure increased [Recovered/Resolved]
  - Visual acuity reduced [Unknown]
  - Retinal haemorrhage [Unknown]
  - Intraocular pressure increased [Unknown]
  - Retinal haemorrhage [Unknown]
  - Visual impairment [Unknown]
  - Varicose vein [Unknown]

NARRATIVE: CASE EVENT DATE: 20210101
